FAERS Safety Report 6819273-0 (Version None)
Quarter: 2010Q3

REPORT INFORMATION
  Report Type: 
  Country: None (occurrence: None)
  Receive Date: 20100707
  Receipt Date: 20100623
  Transmission Date: 20110219
  Serious: Yes (Hospitalization, Other)
  Sender: FDA-Public Use
  Company Number: US-ELI_LILLY_AND_COMPANY-US201006006800

PATIENT
  Sex: Female

DRUGS (18)
  1. FORTEO [Suspect]
     Indication: OSTEOPOROSIS
     Dosage: 20 UG, DAILY (1/D)
     Dates: end: 20100619
  2. ASPIRIN [Concomitant]
  3. DIOVAN [Concomitant]
     Dosage: 80 MG, UNKNOWN
  4. NEXIUM [Concomitant]
     Dosage: 40 MG, UNKNOWN
  5. NITROFURANTOIN [Concomitant]
     Dosage: 50 MG, UNKNOWN
  6. LEXAPRO [Concomitant]
     Dosage: 10 MG, UNKNOWN
  7. MULTI-VITAMIN [Concomitant]
  8. VITAMIN D3 [Concomitant]
     Dosage: 2000 IU, UNKNOWN
  9. IRON [Concomitant]
  10. VITAMIN C [Concomitant]
     Dosage: 500 IU, UNKNOWN
  11. CALCIUM W/VITAMIN D NOS [Concomitant]
  12. OSTEO BI-FLEX [Concomitant]
  13. LIPITOR [Concomitant]
     Dosage: 80 MG, UNKNOWN
  14. ZETIA [Concomitant]
     Dosage: 10 MG, UNKNOWN
  15. DILTIAZEM HCL [Concomitant]
     Dosage: 120 MG, UNKNOWN
  16. VESICARE [Concomitant]
     Dosage: 5 MG, UNKNOWN
  17. OXYCODONE HCL [Concomitant]
  18. ANTIHYPERTENSIVES [Concomitant]

REACTIONS (8)
  - AMNESIA [None]
  - BALANCE DISORDER [None]
  - DISORIENTATION [None]
  - DIZZINESS [None]
  - EMBOLIC STROKE [None]
  - HEADACHE [None]
  - HYPERTENSION [None]
  - NAUSEA [None]
